FAERS Safety Report 4527718-4 (Version None)
Quarter: 2004Q4

REPORT INFORMATION
  Report Type: 
  Country: None (occurrence: None)
  Receive Date: 20041130
  Receipt Date: 20041019
  Transmission Date: 20050328
  Serious: No
  Sender: FDA-Public Use
  Company Number: WAES 0410USA02930

PATIENT
  Sex: Female

DRUGS (4)
  1. ZETIA [Suspect]
     Indication: BLOOD CHOLESTEROL INCREASED
     Dosage: 10 MG/DAILY/PO
     Route: 048
     Dates: start: 20030401
  2. NIASPAN [Concomitant]
  3. ASPIRIN [Concomitant]
  4. CALCIUM (UNSPECIFIED) (+) VITAMI [Concomitant]

REACTIONS (1)
  - ALOPECIA [None]
